FAERS Safety Report 18464140 (Version 2)
Quarter: 2020Q4

REPORT INFORMATION
  Report Type: Report from Study
  Country: FR (occurrence: FR)
  Receive Date: 20201104
  Receipt Date: 20201109
  Transmission Date: 20210114
  Serious: Yes (Death, Other)
  Sender: FDA-Public Use
  Company Number: FR-GILEAD-2020-0500327

PATIENT
  Age: 77 Year
  Sex: Male
  Weight: 100 kg

DRUGS (25)
  1. TAZOCILLINE [Concomitant]
     Active Substance: PIPERACILLIN SODIUM\TAZOBACTAM SODIUM
     Dosage: 16 OTHER
     Dates: start: 20201017
  2. NIMBEX [Concomitant]
     Active Substance: CISATRACURIUM BESYLATE
     Dosage: 150 MG, QD
  3. TAHOR [Concomitant]
     Active Substance: ATORVASTATIN CALCIUM
     Dosage: 80 MG, QD
     Route: 048
  4. ULTIBRO BREEZHALER [Concomitant]
     Active Substance: GLYCOPYRRONIUM\INDACATEROL
     Dosage: 85 OTHER QD
  5. LOVENOX [Concomitant]
     Active Substance: ENOXAPARIN SODIUM
     Dosage: 80000 IU, QD
  6. LERCANIDIPINE [Concomitant]
     Active Substance: LERCANIDIPINE
     Indication: HYPERTENSION
     Dosage: 10 MG, QD
     Route: 048
  7. PERINDOPRIL [Concomitant]
     Active Substance: PERINDOPRIL
     Indication: HYPERTENSION
     Dosage: 5 MG, QD
     Route: 048
  8. PARACETAMOL [Concomitant]
     Active Substance: ACETAMINOPHEN
     Dosage: 3000 MG, QD
     Route: 042
     Dates: start: 20201020
  9. AUGMENTIN [Concomitant]
     Active Substance: AMOXICILLIN\CLAVULANATE POTASSIUM
     Dosage: 4000 MG, QD
     Dates: start: 20201017, end: 20201017
  10. REMDESIVIR. [Suspect]
     Active Substance: REMDESIVIR
     Dosage: 100 MG
     Route: 042
     Dates: start: 20201017, end: 20201018
  11. FLECAINE [Concomitant]
     Active Substance: FLECAINIDE
     Indication: ARRHYTHMIA
     Dosage: 150 MG, QD
  12. INIPOMP [Concomitant]
     Active Substance: PANTOPRAZOLE SODIUM
     Dosage: 40 MG, QD
     Route: 048
  13. DEXAMETHASONE. [Concomitant]
     Active Substance: DEXAMETHASONE
     Dosage: 10 MG, QD
     Dates: start: 20201017
  14. SUFENTANIL [Concomitant]
     Active Substance: SUFENTANIL
     Dosage: 360 OTHER
     Route: 042
     Dates: start: 20201017
  15. NIMBEX [Concomitant]
     Active Substance: CISATRACURIUM BESYLATE
     Dosage: 215 MG, ONCE
     Route: 042
     Dates: start: 20201017, end: 20201017
  16. OXYGEN. [Concomitant]
     Active Substance: OXYGEN
  17. JANUMET [Concomitant]
     Active Substance: METFORMIN HYDROCHLORIDE\SITAGLIPTIN PHOSPHATE
     Indication: DIABETES MELLITUS
     Dosage: 50 MG/
  18. TIMOFEROL [Concomitant]
     Active Substance: ASCORBIC ACID\FERROUS SULFATE
     Dosage: 100 MG, QD
     Route: 048
  19. MIDAZOLAM. [Concomitant]
     Active Substance: MIDAZOLAM
     Dosage: 144 MG, QD
     Route: 042
     Dates: start: 20201017
  20. FUROSEMIDE. [Concomitant]
     Active Substance: FUROSEMIDE
     Dosage: 40 MG, QD
     Dates: start: 20201017
  21. REMDESIVIR. [Suspect]
     Active Substance: REMDESIVIR
     Indication: COVID-19
     Dosage: 200 MG, ONCE
     Route: 042
     Dates: start: 20201016, end: 20201016
  22. KARDEGIC [Concomitant]
     Active Substance: ASPIRIN DL-LYSINE
     Indication: CEREBROVASCULAR ACCIDENT
     Dosage: 75 MG, QD
     Route: 048
  23. INDAPAMIDE. [Concomitant]
     Active Substance: INDAPAMIDE
     Indication: HYPERTENSION
     Dosage: 1.25 MG, QD
  24. IPRATROPIUM BROMIDE\FENOTEROL HYDROBROMIDE [Concomitant]
     Active Substance: FENOTEROL HYDROBROMIDE\IPRATROPIUM BROMIDE
     Dosage: 100 MG, QD
     Route: 055
  25. NIMBEX [Concomitant]
     Active Substance: CISATRACURIUM BESYLATE
     Dosage: 320 UNK
     Route: 042
     Dates: start: 20201018, end: 20201018

REACTIONS (2)
  - Sinus bradycardia [Recovered/Resolved]
  - Multiple organ dysfunction syndrome [Fatal]

NARRATIVE: CASE EVENT DATE: 20201018
